FAERS Safety Report 4947970-0 (Version None)
Quarter: 2006Q1

REPORT INFORMATION
  Report Type: 
  Country: None (occurrence: None)
  Receive Date: 20060320
  Receipt Date: 20050914
  Transmission Date: 20060701
  Serious: Yes (Hospitalization, Disabling)
  Sender: FDA-Public Use
  Company Number: US-MERCK-0509USA02124

PATIENT
  Age: 46 Year
  Sex: Female
  Weight: 81 kg

DRUGS (18)
  1. VIOXX [Suspect]
     Indication: RHEUMATOID ARTHRITIS
     Route: 048
     Dates: start: 19990101, end: 20040930
  2. VITAMIN E [Concomitant]
     Route: 065
  3. VITAMIN D (UNSPECIFIED) [Concomitant]
     Route: 065
  4. VITAMIN B COMPLEX [Concomitant]
     Route: 065
  5. ASPIRIN [Concomitant]
     Route: 065
  6. GASTROINTESTINAL PREPARATIONS (UNSPECIFIED) [Concomitant]
     Route: 065
  7. PROTONIX [Concomitant]
     Route: 065
  8. NORVASC [Concomitant]
     Route: 065
  9. FOSINOPRIL SODIUM [Concomitant]
     Route: 065
  10. NOVOLOG [Concomitant]
     Route: 065
  11. HYDROCHLOROTHIAZIDE [Concomitant]
     Route: 048
  12. ZOCOR [Concomitant]
     Route: 065
  13. NIASPAN [Concomitant]
     Route: 065
  14. HYDROCODONE BITARTRATE [Concomitant]
     Route: 065
  15. NASACORT AQ [Concomitant]
     Route: 065
  16. ACTOS [Concomitant]
     Route: 065
  17. TRICOR [Concomitant]
     Route: 065
  18. CYMBALTA [Concomitant]
     Route: 065

REACTIONS (19)
  - ANHEDONIA [None]
  - CARDIAC FAILURE CONGESTIVE [None]
  - CARDIAC MURMUR [None]
  - CEREBRAL DISORDER [None]
  - DEPRESSION [None]
  - DIABETES MELLITUS [None]
  - DRUG HYPERSENSITIVITY [None]
  - EMOTIONAL DISTRESS [None]
  - GASTROOESOPHAGEAL REFLUX DISEASE [None]
  - GOUT [None]
  - HEART DISEASE CONGENITAL [None]
  - HYPERTENSION [None]
  - NEOPLASM MALIGNANT [None]
  - NERVOUS SYSTEM DISORDER [None]
  - NEUROPATHY [None]
  - OBSTRUCTION [None]
  - OEDEMA PERIPHERAL [None]
  - THYROID DISORDER [None]
  - TRANSIENT ISCHAEMIC ATTACK [None]
